FAERS Safety Report 20798257 (Version 1)
Quarter: 2022Q2

REPORT INFORMATION
  Report Type: Spontaneous
  Country: US (occurrence: US)
  Receive Date: 20220507
  Receipt Date: 20220507
  Transmission Date: 20220721
  Serious: No
  Sender: FDA-Public Use
  Company Number: US-SA-SAC20220503001224

PATIENT
  Age: 61 Year
  Sex: Female

DRUGS (28)
  1. DUPIXENT [Suspect]
     Active Substance: DUPILUMAB
     Indication: Nasal polyps
     Dosage: 300 MG, QOW
     Route: 058
  2. CALCIUM\CHOLECALCIFEROL\MINERALS [Concomitant]
     Active Substance: CALCIUM\CHOLECALCIFEROL\MINERALS
  3. VITAMIN B6 [Concomitant]
     Active Substance: PYRIDOXINE HYDROCHLORIDE
  4. CYANOCOBALAMIN [Concomitant]
     Active Substance: CYANOCOBALAMIN
  5. VITAMIN B1 [Concomitant]
     Active Substance: THIAMINE HYDROCHLORIDE
  6. ASPIRIN [Concomitant]
     Active Substance: ASPIRIN
  7. IMODIUM [Concomitant]
     Active Substance: LOPERAMIDE HYDROCHLORIDE
  8. PEPCID [Concomitant]
     Active Substance: FAMOTIDINE
  9. KLONOPIN [Concomitant]
     Active Substance: CLONAZEPAM
  10. VITAMIN D3 [Concomitant]
     Active Substance: CHOLECALCIFEROL
  11. TESTOSTERONE [Concomitant]
     Active Substance: TESTOSTERONE
  12. FIBER [Concomitant]
     Active Substance: PSYLLIUM HUSK
  13. ALBUTEROL SULFATE [Concomitant]
     Active Substance: ALBUTEROL SULFATE
  14. HYDROCORTISONE [Concomitant]
     Active Substance: HYDROCORTISONE
  15. VITAMIN C [Concomitant]
     Active Substance: ASCORBIC ACID
  16. ZYRTEC [Concomitant]
     Active Substance: CETIRIZINE HYDROCHLORIDE
  17. FLUOXETINE DR REDDYS [Concomitant]
  18. FINACEA [Concomitant]
     Active Substance: AZELAIC ACID
  19. OMEPRAZOLE [Concomitant]
     Active Substance: OMEPRAZOLE
  20. FLONASE ALLERGY RELIEF [Concomitant]
     Active Substance: FLUTICASONE PROPIONATE
  21. FLOVENT HFA [Concomitant]
     Active Substance: FLUTICASONE PROPIONATE
  22. MONTELUKAST SODIUM [Concomitant]
     Active Substance: MONTELUKAST SODIUM
  23. DIETARY SUPPLEMENT [Concomitant]
     Active Substance: DIETARY SUPPLEMENT
  24. ALBUTEROL SULFATE [Concomitant]
     Active Substance: ALBUTEROL SULFATE
  25. SOY ISOFLAVONES [SOYA ISOFLAVONES] [Concomitant]
  26. COENZYME Q10 [Concomitant]
     Active Substance: DIETARY SUPPLEMENT\UBIDECARENONE
  27. MAGNESIUM [ASCORBIC ACID;FOLIC ACID;MAGNESIUM;NICOTINIC ACID;PYRIDOXIN [Concomitant]
  28. CENTRUM SILVER [ASCORBIC ACID;CALCIUM;MINERALS NOS;RETINOL;TOCOPHERYL [Concomitant]

REACTIONS (8)
  - Pyrexia [Unknown]
  - Headache [Unknown]
  - Vomiting [Unknown]
  - Arthralgia [Unknown]
  - Myalgia [Unknown]
  - Diplopia [Unknown]
  - Inflammatory marker increased [Unknown]
  - Product use in unapproved indication [Unknown]
